FAERS Safety Report 5718977-0 (Version None)
Quarter: 2008Q2

REPORT INFORMATION
  Report Type: 
  Country: None (occurrence: None)
  Receive Date: 20080425
  Receipt Date: 20080417
  Transmission Date: 20081010
  Serious: Yes (Hospitalization)
  Sender: FDA-Public Use
  Company Number: PHHO2003RU14576

PATIENT
  Age: 65 Year
  Sex: Female
  Weight: 71 kg

DRUGS (4)
  1. NATEGLINIDE [Suspect]
     Indication: GLUCOSE TOLERANCE IMPAIRED
     Dosage: LEVEL 1
     Route: 048
     Dates: start: 20021008
  2. NATEGLINIDE [Suspect]
     Dosage: LEVEL 2
     Route: 048
     Dates: end: 20031021
  3. VALSARTAN [Suspect]
     Indication: CARDIOVASCULAR DISORDER
     Dosage: LEVEL 1
     Route: 048
     Dates: start: 20021008
  4. VALSARTAN [Suspect]
     Dosage: LEVEL 2
     Route: 048
     Dates: end: 20031021

REACTIONS (14)
  - ASTHENIA [None]
  - CARDIAC FAILURE CONGESTIVE [None]
  - CHEST PAIN [None]
  - CONCOMITANT DISEASE PROGRESSION [None]
  - DIZZINESS [None]
  - DRUG INEFFECTIVE [None]
  - DYSPNOEA EXERTIONAL [None]
  - GOITRE [None]
  - HEADACHE [None]
  - HYPERTENSIVE CRISIS [None]
  - MYOCARDIAL ISCHAEMIA [None]
  - OEDEMA PERIPHERAL [None]
  - PYELONEPHRITIS CHRONIC [None]
  - THROMBOPHLEBITIS [None]
